FAERS Safety Report 9531884 (Version 1)
Quarter: 2013Q3

REPORT INFORMATION
  Report Type: Spontaneous
  Country: TR (occurrence: None)
  Receive Date: 20130916
  Receipt Date: 20130916
  Transmission Date: 20140515
  Serious: Yes (Hospitalization, Other)
  Sender: FDA-Public Use
  Company Number: 2013AQ000041

PATIENT
  Age: 33 Year
  Sex: Female

DRUGS (4)
  1. DOXYCYCLINE [Suspect]
     Indication: PELVIC INFLAMMATORY DISEASE
     Route: 048
  2. FAMOTIDINE [Concomitant]
  3. LIQUID ANTACIDS [Concomitant]
  4. ANTICHOLINERGICS [Concomitant]

REACTIONS (3)
  - Oesophageal ulcer [None]
  - Gastritis erosive [None]
  - Erosive oesophagitis [None]
